FAERS Safety Report 9834942 (Version 1)
Quarter: 2014Q1

REPORT INFORMATION
  Report Type: Spontaneous
  Country: DE (occurrence: DE)
  Receive Date: 20140122
  Receipt Date: 20140122
  Transmission Date: 20141002
  Serious: Yes (Other)
  Sender: FDA-Public Use
  Company Number: DE-GLAXOSMITHKLINE-D0082549A

PATIENT
  Sex: Male

DRUGS (1)
  1. DUODART [Suspect]
     Route: 048

REACTIONS (1)
  - Urinary retention [Unknown]
